FAERS Safety Report 24064293 (Version 1)
Quarter: 2024Q3

REPORT INFORMATION
  Report Type: Report from Study
  Country: US (occurrence: US)
  Receive Date: 20240709
  Receipt Date: 20240709
  Transmission Date: 20241017
  Serious: Yes (Other)
  Sender: BAYER
  Company Number: US-BAYER-2024A077986

PATIENT
  Age: 73 Year
  Sex: Male

DRUGS (1)
  1. ADEMPAS [Suspect]
     Active Substance: RIOCIGUAT
     Indication: Pulmonary arterial hypertension
     Dosage: 2 MG
     Dates: start: 20240322

REACTIONS (10)
  - Polyp [None]
  - Gastrointestinal disorder [None]
  - Joint swelling [Not Recovered/Not Resolved]
  - Pain in extremity [Recovering/Resolving]
  - Skin discolouration [Not Recovered/Not Resolved]
  - Muscular weakness [None]
  - Headache [Not Recovered/Not Resolved]
  - Nausea [None]
  - Dizziness [Not Recovered/Not Resolved]
  - Peripheral swelling [Not Recovered/Not Resolved]

NARRATIVE: CASE EVENT DATE: 20240501
